FAERS Safety Report 8589426-2 (Version None)
Quarter: 2012Q3

REPORT INFORMATION
  Report Type: 
  Country: None (occurrence: None)
  Receive Date: 20120813
  Receipt Date: 20120807
  Transmission Date: 20120928
  Serious: Yes (Hospitalization)
  Sender: FDA-Public Use
  Company Number: ZA-SANOFI-AVENTIS-2012SA056553

PATIENT
  Age: 36 Year
  Sex: Female

DRUGS (6)
  1. LANTUS SOLOSTAR [Suspect]
     Dosage: DOSE:22 UNIT(S)
     Route: 058
     Dates: start: 20120802
  2. LANTUS SOLOSTAR [Suspect]
     Indication: TYPE 2 DIABETES MELLITUS
     Dosage: DOSE:20 UNIT(S)
     Route: 058
     Dates: start: 20120315
  3. SOLOSTAR [Suspect]
     Indication: DEVICE THERAPY
     Dates: start: 20120315
  4. SOLOSTAR [Suspect]
     Dates: start: 20120802
  5. GLUCOMED [Concomitant]
     Route: 048
     Dates: start: 20120315
  6. GLUCOPHAGE [Concomitant]
     Route: 048
     Dates: start: 20120315

REACTIONS (3)
  - VOMITING [None]
  - DIARRHOEA [None]
  - GASTROINTESTINAL INFECTION [None]
